FAERS Safety Report 19419832 (Version 2)
Quarter: 2021Q2

REPORT INFORMATION
  Report Type: Report from Study
  Country: US (occurrence: US)
  Receive Date: 20210615
  Receipt Date: 20210622
  Transmission Date: 20210717
  Serious: Yes (Hospitalization)
  Sender: FDA-Public Use
  Company Number: US-EXELIXIS-CABO-21039569

PATIENT
  Age: 61 Year
  Sex: Female

DRUGS (2)
  1. CABOMETYX [Suspect]
     Active Substance: CABOZANTINIB S-MALATE
     Indication: METASTASES TO LUNG
  2. CABOMETYX [Suspect]
     Active Substance: CABOZANTINIB S-MALATE
     Indication: RENAL CELL CARCINOMA
     Dosage: 40 MG, QD
     Route: 048
     Dates: start: 20210326

REACTIONS (18)
  - Diarrhoea [Unknown]
  - Fatigue [Unknown]
  - Mucosal inflammation [Recovering/Resolving]
  - Hepatic enzyme increased [Unknown]
  - Tachycardia [Not Recovered/Not Resolved]
  - Nausea [Unknown]
  - Somnolence [Not Recovered/Not Resolved]
  - Blood pressure fluctuation [Unknown]
  - Stomatitis [Recovered/Resolved]
  - Headache [Unknown]
  - Hypertension [Unknown]
  - Palpitations [Not Recovered/Not Resolved]
  - Dyspnoea exertional [Unknown]
  - Vomiting [Unknown]
  - Decreased appetite [Recovered/Resolved]
  - Weight decreased [Recovering/Resolving]
  - Loss of personal independence in daily activities [Not Recovered/Not Resolved]
  - Dyspnoea [Not Recovered/Not Resolved]

NARRATIVE: CASE EVENT DATE: 20210525
